FAERS Safety Report 10715922 (Version 2)
Quarter: 2015Q1

REPORT INFORMATION
  Report Type: Spontaneous
  Country: US (occurrence: US)
  Receive Date: 20150116
  Receipt Date: 20150121
  Transmission Date: 20150721
  Serious: Yes (Other)
  Sender: FDA-Public Use
  Company Number: US-PFIZER INC-2015015320

PATIENT
  Age: 58 Year
  Sex: Female
  Weight: 52.15 kg

DRUGS (4)
  1. SYNTHROID [Concomitant]
     Active Substance: LEVOTHYROXINE SODIUM
     Indication: HYPOTHYROIDISM
     Dosage: 75 ?G, ALTERNATE DAY
  2. SYNTHROID [Concomitant]
     Active Substance: LEVOTHYROXINE SODIUM
     Dosage: 88 ?G, ALTERNATE DAY
  3. LYRICA [Suspect]
     Active Substance: PREGABALIN
     Dosage: 100MG  IN THE MORNING AND 75MG  IN THE EVENING
  4. LYRICA [Suspect]
     Active Substance: PREGABALIN
     Indication: NEUROPATHY PERIPHERAL
     Dosage: 25 MG, 2X/DAY
     Route: 048
     Dates: start: 201206

REACTIONS (9)
  - Feeling abnormal [Not Recovered/Not Resolved]
  - Reaction to drug excipients [Unknown]
  - Palpitations [Not Recovered/Not Resolved]
  - Food allergy [Not Recovered/Not Resolved]
  - Rash [Not Recovered/Not Resolved]
  - Insomnia [Unknown]
  - Cough [Not Recovered/Not Resolved]
  - Weight increased [Unknown]
  - Sneezing [Unknown]

NARRATIVE: CASE EVENT DATE: 2012
